FAERS Safety Report 6416256-X (Version None)
Quarter: 2009Q4

REPORT INFORMATION
  Report Type: 
  Country: None (occurrence: None)
  Receive Date: 20091023
  Receipt Date: 20091015
  Transmission Date: 20100525
  Serious: Yes (Other)
  Sender: FDA-Public Use
  Company Number: 2009US003694

PATIENT
  Age: 29 Year
  Sex: Female
  Weight: 59.9 kg

DRUGS (6)
  1. PROGRAF [Suspect]
     Indication: LUNG DISORDER
     Dosage: 2 MG, BID, ORAL; 7 MG, UID/QD, ORAL
     Route: 048
  2. AZATHIOPRINE [Concomitant]
  3. PREDNISONE TAB [Concomitant]
  4. SPORANOX [Concomitant]
  5. NEURONTIN [Concomitant]
  6. BACTRIM [Concomitant]

REACTIONS (3)
  - ABORTION SPONTANEOUS [None]
  - DRUG EXPOSURE DURING PREGNANCY [None]
  - PREGNANCY [None]
